FAERS Safety Report 19957469 (Version 5)
Quarter: 2021Q4

REPORT INFORMATION
  Report Type: Spontaneous
  Country: US (occurrence: US)
  Receive Date: 20211015
  Receipt Date: 20211118
  Transmission Date: 20220303
  Serious: Yes (Other)
  Sender: FDA-Public Use
  Company Number: US-009507513-2110USA003370

PATIENT
  Age: 65 Year
  Sex: Female
  Weight: 76.735 kg

DRUGS (4)
  1. BELSOMRA [Suspect]
     Active Substance: SUVOREXANT
     Indication: Insomnia
     Dosage: 10 MILLIGRAM, 2 OR 3 EACH NIGHT
     Route: 048
     Dates: start: 201710, end: 201910
  2. BELSOMRA [Suspect]
     Active Substance: SUVOREXANT
     Dosage: 25 MG ONCE DAILY
     Route: 048
  3. CLINDAMYCIN [Suspect]
     Active Substance: CLINDAMYCIN
  4. KLONOPIN [Concomitant]
     Active Substance: CLONAZEPAM
     Indication: Dyskinesia
     Dosage: UNK
     Dates: start: 201710, end: 201910

REACTIONS (7)
  - Malignant neoplasm of eye [Unknown]
  - Dyskinesia [Unknown]
  - Insomnia [Not Recovered/Not Resolved]
  - Drug hypersensitivity [Unknown]
  - Hangover [Unknown]
  - Somnolence [Unknown]
  - Incorrect dose administered [Unknown]

NARRATIVE: CASE EVENT DATE: 20171001
